FAERS Safety Report 9684495 (Version 2)
Quarter: 2013Q4

REPORT INFORMATION
  Report Type: Spontaneous
  Country: DE (occurrence: DE)
  Receive Date: 20131112
  Receipt Date: 20131112
  Transmission Date: 20140711
  Serious: Yes (Life-Threatening, Hospitalization, Other)
  Sender: FDA-Public Use
  Company Number: DE-GILEAD-2013-0087046

PATIENT
  Age: 67 Year
  Sex: Male
  Weight: 80 kg

DRUGS (6)
  1. VIREAD [Suspect]
     Indication: HEPATITIS B
     Dosage: 245 MG, UNK
     Route: 048
     Dates: start: 2010
  2. CELLCEPT                           /01275102/ [Concomitant]
     Indication: LIVER TRANSPLANT
     Dosage: 500 MG, QD
     Route: 048
     Dates: start: 2005, end: 2009
  3. SANDIMMUN [Concomitant]
     Indication: LIVER TRANSPLANT
     Dosage: UNK
     Route: 048
     Dates: start: 2005
  4. URSOFALK [Concomitant]
     Indication: CHOLESTASIS
     Dosage: 500 MG, UNK
     Route: 048
     Dates: start: 2012
  5. SPIRONOLACTON [Concomitant]
     Indication: ASCITES
     Dosage: 50 MG, UNK
     Route: 048
     Dates: start: 2010
  6. HUMALOG [Concomitant]
     Indication: DIABETES MELLITUS
     Dosage: UNK
     Route: 058
     Dates: start: 2002

REACTIONS (5)
  - Hepatorenal syndrome [Unknown]
  - Hepatic failure [Unknown]
  - Circulatory collapse [Unknown]
  - Sepsis [Unknown]
  - Infection [Unknown]
